FAERS Safety Report 14530844 (Version 1)
Quarter: 2018Q1

REPORT INFORMATION
  Report Type: Spontaneous
  Country: NL (occurrence: NL)
  Receive Date: 20180214
  Receipt Date: 20180214
  Transmission Date: 20180509
  Serious: Yes (Other)
  Sender: FDA-Public Use
  Company Number: NL-GLAXOSMITHKLINE-NL2018023104

PATIENT
  Age: 6 Year
  Sex: Female

DRUGS (6)
  1. AVAMYS [Interacting]
     Active Substance: FLUTICASONE FUROATE
     Dosage: TWICE DAILY
     Route: 045
  2. ABACAVIR. [Concomitant]
     Active Substance: ABACAVIR
     Indication: CONGENITAL HIV INFECTION
     Dosage: 320 MG, QD
     Route: 065
  3. LOPINAVIR AND RITONAVIR [Interacting]
     Active Substance: LOPINAVIR\RITONAVIR
     Indication: CONGENITAL HIV INFECTION
     Dosage: 1 DD 320/80 MG
     Route: 065
  4. LAMIVUDINE. [Concomitant]
     Active Substance: LAMIVUDINE
     Indication: CONGENITAL HIV INFECTION
     Dosage: 160 MG, QD
     Route: 065
  5. AVAMYS [Suspect]
     Active Substance: FLUTICASONE FUROATE
     Indication: RHINITIS ALLERGIC
     Dosage: UNK
     Route: 045
  6. AVAMYS [Interacting]
     Active Substance: FLUTICASONE FUROATE
     Dosage: REDUCE THE DOSAGE FROM 2 DD TO 1 DD FOR 1 WEEK
     Route: 045

REACTIONS (2)
  - Drug interaction [Recovered/Resolved]
  - Cushing^s syndrome [Recovered/Resolved]
